FAERS Safety Report 15744711 (Version 1)
Quarter: 2018Q4

REPORT INFORMATION
  Report Type: Report from Study
  Country: None (occurrence: TR)
  Receive Date: 20181220
  Receipt Date: 20181220
  Transmission Date: 20190205
  Serious: Yes (Other)
  Sender: FDA-Public Use
  Company Number: TR-ABBVIE-18S-161-2596234-00

PATIENT
  Age: 65 Year
  Sex: Male
  Weight: 65 kg

DRUGS (5)
  1. MELATONINA [Concomitant]
     Indication: SLEEP DISORDER
     Dosage: 1X2
     Route: 048
     Dates: start: 201801
  2. KINZY [Concomitant]
     Indication: INCONTINENCE
     Route: 048
     Dates: start: 2018
  3. DUODOPA [Suspect]
     Active Substance: CARBIDOPA\LEVODOPA
     Indication: PARKINSON^S DISEASE
     Dosage: MD(ML): 4.00,CD (ML): 1.80, ED(ML): 0.10
     Route: 050
     Dates: start: 20180413
  4. LANSOR [Concomitant]
     Active Substance: LANSOPRAZOLE
     Indication: PROPHYLAXIS
     Route: 048
     Dates: start: 20180413
  5. VASOSERC [Concomitant]
     Indication: ORTHOSTATIC HYPOTENSION
     Route: 048
     Dates: start: 2013

REACTIONS (6)
  - Blindness unilateral [Not Recovered/Not Resolved]
  - Skin laceration [Not Recovered/Not Resolved]
  - Memory impairment [Not Recovered/Not Resolved]
  - Visual acuity reduced [Not Recovered/Not Resolved]
  - Intraocular pressure increased [Not Recovered/Not Resolved]
  - Fall [Recovered/Resolved]

NARRATIVE: CASE EVENT DATE: 201810
